FAERS Safety Report 23375126 (Version 1)
Quarter: 2024Q1

REPORT INFORMATION
  Report Type: Spontaneous
  Country: FR (occurrence: FR)
  Receive Date: 20240106
  Receipt Date: 20240106
  Transmission Date: 20240409
  Serious: Yes (Other)
  Sender: FDA-Public Use
  Company Number: FR-AFSSAPS-RE2023001248

PATIENT
  Age: 76 Year
  Sex: Male
  Weight: 95 kg

DRUGS (7)
  1. FLECAINIDE [Suspect]
     Active Substance: FLECAINIDE
     Indication: Atrial fibrillation
     Dosage: 300 MILLIGRAM, ONCE A DAY
     Route: 048
     Dates: end: 20230419
  2. ATENOLOL [Suspect]
     Active Substance: ATENOLOL
     Indication: Atrial fibrillation
     Dosage: 25 MILLIGRAM, ONCE A DAY
     Route: 048
     Dates: end: 20230419
  3. FENOFIBRATE [Concomitant]
     Active Substance: FENOFIBRATE
     Indication: Product used for unknown indication
     Dosage: UNK
     Route: 065
  4. OMEPRAZOLE [Concomitant]
     Active Substance: OMEPRAZOLE
     Indication: Product used for unknown indication
     Dosage: UNK
     Route: 065
  5. Previscan [Concomitant]
     Indication: Product used for unknown indication
     Dosage: UNK
     Route: 065
  6. REPAGLINIDE [Concomitant]
     Active Substance: REPAGLINIDE
     Indication: Product used for unknown indication
     Dosage: UNK
     Route: 065
  7. ZESTRIL [Concomitant]
     Active Substance: LISINOPRIL
     Indication: Product used for unknown indication
     Dosage: UNK
     Route: 065

REACTIONS (2)
  - Electrocardiogram QRS complex prolonged [Recovered/Resolved]
  - Bradycardia [Recovered/Resolved]

NARRATIVE: CASE EVENT DATE: 20230419
